FAERS Safety Report 17430068 (Version 5)
Quarter: 2020Q3

REPORT INFORMATION
  Report Type: Spontaneous
  Country: US (occurrence: US)
  Receive Date: 20200218
  Receipt Date: 20200928
  Transmission Date: 20201102
  Serious: No
  Sender: FDA-Public Use
  Company Number: US-PFIZER INC-2018110383

PATIENT
  Age: 79 Year
  Sex: Male
  Weight: 111 kg

DRUGS (1)
  1. XALKORI [Suspect]
     Active Substance: CRIZOTINIB
     Indication: LUNG NEOPLASM MALIGNANT
     Dosage: 200 MG, 2X/DAY (EVERY 12 HOURS)
     Route: 048
     Dates: start: 2014

REACTIONS (3)
  - Abdominal discomfort [Unknown]
  - Blood pressure increased [Unknown]
  - Malaise [Unknown]
